FAERS Safety Report 8880232 (Version 3)
Quarter: 2012Q4

REPORT INFORMATION
  Report Type: 
  Country: US (occurrence: US)
  Receive Date: 20121031
  Receipt Date: 20121206
  Transmission Date: 20130627
  Serious: Yes (Hospitalization, Other)
  Sender: FDA-Public Use
  Company Number: US-009507513-1210USA010412

PATIENT
  Age: 72 None
  Sex: Male
  Weight: 99.77 kg

DRUGS (8)
  1. PERPHENAZINE [Suspect]
     Indication: BIPOLAR DISORDER
     Dosage: UNK
     Dates: end: 201209
  2. GEODON [Suspect]
     Indication: BIPOLAR DISORDER
     Dosage: UNK, bid
     Route: 048
     Dates: start: 201209, end: 201210
  3. GEODON [Suspect]
     Indication: DEPRESSION
     Dosage: 120 mg, qd
     Route: 048
     Dates: start: 201210
  4. ATIVAN [Suspect]
     Indication: ANXIETY
     Dosage: UNK
     Dates: end: 201209
  5. ATIVAN [Suspect]
     Dosage: UNK
     Dates: start: 201210
  6. LEVOTHYROXINE SODIUM [Suspect]
     Indication: THYROID DISORDER
     Dosage: UNK
     Route: 048
  7. SIMVASTATIN [Suspect]
     Indication: BLOOD CHOLESTEROL
     Route: 048
  8. VITAMINS (UNSPECIFIED) [Suspect]
     Dosage: UNK

REACTIONS (4)
  - Confusional state [Unknown]
  - Dizziness [Unknown]
  - Fall [Unknown]
  - Depression [Not Recovered/Not Resolved]
